FAERS Safety Report 8990383 (Version 1)
Quarter: 2012Q4

REPORT INFORMATION
  Report Type: 
  Country: US (occurrence: US)
  Receive Date: 20121228
  Receipt Date: 20121228
  Transmission Date: 20130627
  Serious: Yes (Other)
  Sender: FDA-Public Use
  Company Number: US-UCBSA-073858

PATIENT
  Age: 64 Year
  Sex: Female

DRUGS (1)
  1. CIMZIA [Suspect]
     Indication: RHEUMATOID ARTHRITIS

REACTIONS (6)
  - Herpes zoster [Unknown]
  - Headache [Unknown]
  - Back pain [Unknown]
  - Cough [Unknown]
  - Wheezing [Unknown]
  - Product quality issue [Unknown]
